FAERS Safety Report 11363992 (Version 2)
Quarter: 2015Q3

REPORT INFORMATION
  Report Type: Report from Study
  Country: JP (occurrence: JP)
  Receive Date: 20150811
  Receipt Date: 20150901
  Transmission Date: 20151125
  Serious: Yes (Hospitalization)
  Sender: FDA-Public Use
  Company Number: JP-ELI_LILLY_AND_COMPANY-JP201507004423

PATIENT
  Age: 74 Year
  Sex: Male
  Weight: 45 kg

DRUGS (10)
  1. FEBURIC [Concomitant]
     Active Substance: FEBUXOSTAT
     Indication: HYPERURICAEMIA
     Dosage: 1 DF, QD
     Route: 048
     Dates: start: 20130918
  2. CISPLATIN. [Suspect]
     Active Substance: CISPLATIN
     Indication: LUNG SQUAMOUS CELL CARCINOMA STAGE IV
     Dosage: 75 MG/M2, CYCLICAL
     Route: 042
     Dates: start: 20150603, end: 20150603
  3. NIFEDIPINE. [Concomitant]
     Active Substance: NIFEDIPINE
     Indication: HYPERTENSION
     Dosage: 1 DF, QD
     Route: 048
     Dates: start: 20121207
  4. CARBOCISTEINE [Concomitant]
     Active Substance: CARBOCYSTEINE
     Indication: SPUTUM RETENTION
     Dosage: 1 DF, TID
     Route: 048
     Dates: start: 20150608
  5. FLUTIFORM [Concomitant]
     Active Substance: FLUTICASONE PROPIONATE\FORMOTEROL FUMARATE
     Indication: ASTHMA
     Dosage: UNK, UNKNOWN
     Route: 055
     Dates: start: 20150423
  6. EURODIN                            /00425901/ [Concomitant]
     Active Substance: ESTAZOLAM
     Indication: INSOMNIA
     Dosage: UNK, PRN
     Route: 048
     Dates: start: 20150619
  7. GEMCITABINE HYDROCHLORIDE. [Suspect]
     Active Substance: GEMCITABINE HYDROCHLORIDE
     Indication: LUNG SQUAMOUS CELL CARCINOMA STAGE IV
     Dosage: 1250 MG/M2, CYCLICAL
     Route: 042
     Dates: start: 20150603, end: 20150610
  8. NEXIUM [Concomitant]
     Active Substance: ESOMEPRAZOLE MAGNESIUM
     Indication: DECREASED APPETITE
     Dosage: 1 DF, QD
     Route: 048
     Dates: start: 20150614
  9. NECITUMUMAB (11F8) (LY3012211) [Suspect]
     Active Substance: NECITUMUMAB
     Indication: LUNG SQUAMOUS CELL CARCINOMA STAGE IV
     Dosage: 800 MG, CYCLICAL
     Route: 042
     Dates: start: 20150603, end: 20150610
  10. ACUATIM [Concomitant]
     Active Substance: NADIFLOXACIN
     Indication: DERMATITIS ACNEIFORM
     Dosage: UNK, UNKNOWN
     Route: 062
     Dates: start: 20150619

REACTIONS (1)
  - Lung infection [Recovering/Resolving]

NARRATIVE: CASE EVENT DATE: 20150713
